FAERS Safety Report 5914504-3 (Version None)
Quarter: 2008Q4

REPORT INFORMATION
  Report Type: 
  Country: None (occurrence: None)
  Receive Date: 20081008
  Receipt Date: 20080922
  Transmission Date: 20090506
  Serious: Yes (Hospitalization, Other)
  Sender: FDA-Public Use
  Company Number: A-US2008-21932

PATIENT

DRUGS (1)
  1. VENTAVIS [Suspect]
     Indication: PULMONARY ARTERIAL HYPERTENSION
     Dosage: 2.5 UG, OD, RESPIRATORY
     Route: 055
     Dates: start: 20080828, end: 20080911

REACTIONS (2)
  - ENDOCARDITIS [None]
  - PLEURAL EFFUSION [None]
